FAERS Safety Report 11108692 (Version 1)
Quarter: 2015Q2

REPORT INFORMATION
  Report Type: Spontaneous
  Country: US (occurrence: US)
  Receive Date: 20150513
  Receipt Date: 20150513
  Transmission Date: 20150821
  Serious: No
  Sender: FDA-Public Use
  Company Number: US-AMGEN-USASP2015043924

PATIENT
  Age: 49 Year
  Sex: Female

DRUGS (1)
  1. ENBREL [Suspect]
     Active Substance: ETANERCEPT
     Indication: PSORIASIS
     Dosage: UNK
     Route: 065
     Dates: start: 20140217

REACTIONS (7)
  - Hysterectomy [Unknown]
  - Tooth disorder [Unknown]
  - Peripheral swelling [Unknown]
  - Crying [Recovered/Resolved]
  - Incoherent [Recovered/Resolved]
  - Drug ineffective [Unknown]
  - Gait disturbance [Unknown]

NARRATIVE: CASE EVENT DATE: 20150504
